FAERS Safety Report 20414763 (Version 3)
Quarter: 2022Q2

REPORT INFORMATION
  Report Type: Report from Study
  Country: US (occurrence: US)
  Receive Date: 20220202
  Receipt Date: 20220510
  Transmission Date: 20220720
  Serious: Yes (Other)
  Sender: FDA-Public Use
  Company Number: US-Ipsen Biopharmaceuticals, Inc.-2022-01790

PATIENT
  Age: 52 Year
  Sex: Female

DRUGS (2)
  1. SOMATULINE DEPOT [Suspect]
     Active Substance: LANREOTIDE ACETATE
     Indication: Pancreatic carcinoma
     Dosage: 120 MG, FOUR WEEKS
     Route: 058
     Dates: start: 202111
  2. METFORMIN [Concomitant]
     Active Substance: METFORMIN HYDROCHLORIDE

REACTIONS (11)
  - Disease progression [Recovering/Resolving]
  - Diabetes mellitus [Recovering/Resolving]
  - Fatigue [Not Recovered/Not Resolved]
  - Muscle strain [Unknown]
  - Asthenia [Unknown]
  - Illness [Unknown]
  - Diarrhoea [Recovering/Resolving]
  - Nausea [Unknown]
  - Migraine [Unknown]
  - Abdominal pain [Unknown]
  - Vitamin D decreased [Recovering/Resolving]

NARRATIVE: CASE EVENT DATE: 20220401
